FAERS Safety Report 10363659 (Version 2)
Quarter: 2014Q3

REPORT INFORMATION
  Report Type: Spontaneous
  Country: US (occurrence: US)
  Receive Date: 20140805
  Receipt Date: 20140805
  Transmission Date: 20150326
  Serious: Yes (Hospitalization, Disabling, Other)
  Sender: FDA-Public Use
  Company Number: US-009507513-2009-193753-NL

PATIENT
  Sex: Female
  Weight: 84.35 kg

DRUGS (2)
  1. NUVARING [Suspect]
     Active Substance: ETHINYL ESTRADIOL\ETONOGESTREL
     Indication: CONTRACEPTION
     Dosage: DOSE TEXT: 3 WEEKS IN, 1 WEEK OUT, CONTINUING: NO
     Route: 067
     Dates: start: 20030226, end: 200305
  2. WELCHOL [Concomitant]
     Active Substance: COLESEVELAM HYDROCHLORIDE
     Indication: IRRITABLE BOWEL SYNDROME

REACTIONS (41)
  - Disorientation [Unknown]
  - Post-traumatic stress disorder [Unknown]
  - Deep vein thrombosis [Unknown]
  - Menstrual disorder [Unknown]
  - Pulmonary embolism [Unknown]
  - Pregnancy [Unknown]
  - Ankle fracture [Unknown]
  - Pulmonary embolism [Unknown]
  - Migraine [Unknown]
  - Hysterectomy [Unknown]
  - Subclavian vein thrombosis [Unknown]
  - Ankle operation [Unknown]
  - Deep vein thrombosis [Unknown]
  - Phlebitis [Unknown]
  - Anxiety [Unknown]
  - Thrombosis [Unknown]
  - Thyroid disorder [Unknown]
  - Fracture nonunion [Unknown]
  - Ankle operation [Unknown]
  - Cellulitis [Unknown]
  - Intestinal obstruction [Unknown]
  - Urinary tract infection [Unknown]
  - Cluster headache [Not Recovered/Not Resolved]
  - Pulmonary hypertension [Unknown]
  - Right ventricular dysfunction [Unknown]
  - Maternal exposure before pregnancy [Unknown]
  - Gastrointestinal haemorrhage [Unknown]
  - Chest pain [Unknown]
  - Confusional state [Unknown]
  - Dyspnoea [Unknown]
  - Bladder disorder [Unknown]
  - Urinary incontinence [Unknown]
  - Leukocytosis [Unknown]
  - Asthma [Unknown]
  - Left ventricular dysfunction [Unknown]
  - Deep vein thrombosis [Unknown]
  - Deep vein thrombosis [Unknown]
  - May-Thurner syndrome [Unknown]
  - Vena cava filter insertion [Unknown]
  - Post thrombotic syndrome [Unknown]
  - Hypercoagulation [Unknown]

NARRATIVE: CASE EVENT DATE: 2003
